FAERS Safety Report 9560689 (Version 3)
Quarter: 2013Q4

REPORT INFORMATION
  Report Type: Spontaneous
  Country: US (occurrence: US)
  Receive Date: 20130927
  Receipt Date: 20131231
  Transmission Date: 20140711
  Serious: No
  Sender: FDA-Public Use
  Company Number: US-BIOGENIDEC-2013BI053162

PATIENT
  Sex: Female

DRUGS (2)
  1. TECFIDERA [Suspect]
     Indication: MULTIPLE SCLEROSIS
     Route: 048
     Dates: start: 201305, end: 201305
  2. TECFIDERA [Suspect]
     Indication: MULTIPLE SCLEROSIS
     Route: 048
     Dates: start: 20130520, end: 20130701

REACTIONS (13)
  - Anxiety [Recovered/Resolved]
  - Dysgeusia [Recovered/Resolved]
  - Eyelid irritation [Recovered/Resolved]
  - Glossodynia [Recovered/Resolved]
  - Tongue coated [Not Recovered/Not Resolved]
  - Abdominal distension [Recovered/Resolved]
  - Constipation [Recovered/Resolved]
  - Decreased appetite [Recovered/Resolved]
  - Paraesthesia oral [Recovered/Resolved]
  - Oral disorder [Recovered/Resolved]
  - Drug intolerance [Unknown]
  - Generalised erythema [Recovered/Resolved]
  - Flushing [Recovered/Resolved]
